FAERS Safety Report 15647356 (Version 2)
Quarter: 2019Q2

REPORT INFORMATION
  Report Type: Spontaneous
  Country: US (occurrence: US)
  Receive Date: 20181122
  Receipt Date: 20190506
  Transmission Date: 20190711
  Serious: Yes (Other)
  Sender: FDA-Public Use
  Company Number: US-SUN PHARMACEUTICAL INDUSTRIES LTD-2018R1-191760

PATIENT
  Weight: 1.7 kg

DRUGS (1)
  1. ACETAMINOPHEN. [Suspect]
     Active Substance: ACETAMINOPHEN
     Indication: TOOTHACHE
     Dosage: UNK
     Route: 064

REACTIONS (9)
  - Foetal exposure during pregnancy [Unknown]
  - Platelet count decreased [Unknown]
  - Activated partial thromboplastin time abnormal [Unknown]
  - Low birth weight baby [Unknown]
  - Premature baby [Unknown]
  - Coagulopathy [Unknown]
  - Prothrombin time abnormal [Unknown]
  - Hepatotoxicity [Recovering/Resolving]
  - Drug level increased [Recovering/Resolving]
